FAERS Safety Report 8839426 (Version 2)
Quarter: 2013Q3

REPORT INFORMATION
  Report Type: Spontaneous
  Country: US (occurrence: US)
  Receive Date: 20121015
  Receipt Date: 20130812
  Transmission Date: 20140515
  Serious: Yes (Hospitalization, Other)
  Sender: FDA-Public Use
  Company Number: US-BAYER-2012-104177

PATIENT
  Age: 22 Year
  Sex: Female

DRUGS (2)
  1. YASMIN [Suspect]
  2. CELEBREX [Concomitant]

REACTIONS (4)
  - Deep vein thrombosis [None]
  - Thrombophlebitis superficial [None]
  - Cholelithiasis [None]
  - Pulmonary embolism [None]
